FAERS Safety Report 6389296-7 (Version None)
Quarter: 2009Q4

REPORT INFORMATION
  Report Type: 
  Country: None (occurrence: None)
  Receive Date: 20091006
  Receipt Date: 20090930
  Transmission Date: 20100525
  Serious: Yes (Death)
  Sender: FDA-Public Use
  Company Number: PHEH2009US12549

PATIENT
  Sex: Female

DRUGS (3)
  1. EXJADE [Suspect]
     Indication: MYELODYSPLASTIC SYNDROME
     Dosage: 1500 MG DAILY
     Route: 048
     Dates: start: 20070703
  2. EXJADE [Suspect]
     Indication: ANAEMIA OF CHRONIC DISEASE
  3. EXJADE [Suspect]
     Indication: SERUM FERRITIN INCREASED

REACTIONS (1)
  - DEATH [None]
